FAERS Safety Report 24171764 (Version 1)
Quarter: 2024Q3

REPORT INFORMATION
  Report Type: Spontaneous
  Country: US (occurrence: US)
  Receive Date: 20240805
  Receipt Date: 20240805
  Transmission Date: 20241017
  Serious: No
  Sender: SANOFI AVENTIS
  Company Number: US-SA-SAC20240731001221

PATIENT
  Sex: Female

DRUGS (1)
  1. DUPIXENT [Suspect]
     Active Substance: DUPILUMAB
     Indication: Hypersensitivity
     Dosage: UNK
     Route: 050

REACTIONS (3)
  - COVID-19 [Recovering/Resolving]
  - Product use in unapproved indication [Unknown]
  - Incorrect route of product administration [Unknown]
